FAERS Safety Report 21083928 (Version 2)
Quarter: 2022Q3

REPORT INFORMATION
  Report Type: Spontaneous
  Country: CN (occurrence: CN)
  Receive Date: 20220714
  Receipt Date: 20220726
  Transmission Date: 20221027
  Serious: Yes (Other)
  Sender: FDA-Public Use
  Company Number: None

PATIENT
  Age: 42 Year
  Sex: Female
  Weight: 72.5 kg

DRUGS (8)
  1. CYCLOPHOSPHAMIDE [Suspect]
     Active Substance: CYCLOPHOSPHAMIDE
     Indication: Breast cancer female
     Dosage: UNK, QD, 1ST TO 3RD CHEMOTHERAPY CYCLOPHOSPHAMIDE DILUTED WITH SODIUM CHLORIDE
     Route: 042
  2. CYCLOPHOSPHAMIDE [Suspect]
     Active Substance: CYCLOPHOSPHAMIDE
     Dosage: 950.000000MG ONCE DAILY, 4TH CHEMOTHERAPY, CYCLOPHOSPHAMIDE DILUTED WITH SODIUM CHLORIDE
     Route: 042
     Dates: start: 20220519, end: 20220519
  3. SODIUM CHLORIDE [Suspect]
     Active Substance: SODIUM CHLORIDE
     Indication: Medication dilution
     Dosage: UNK, QD, 1ST TO 3RD CHEMOTHERAPY CYCLOPHOSPHAMIDE DILUTED WITH SODIUM CHLORIDE
     Route: 042
  4. SODIUM CHLORIDE [Suspect]
     Active Substance: SODIUM CHLORIDE
     Dosage: 50 ML, QD, 4TH CHEMOTHERAPY, CYCLOPHOSPHAMIDE DILUTED WITH SODIUM CHLORIDE
     Route: 042
     Dates: start: 20220519, end: 20220519
  5. SODIUM CHLORIDE [Suspect]
     Active Substance: SODIUM CHLORIDE
     Dosage: UNK, 1ST TO 3RD CHEMOTHERAPY, DOCETAXEL DILUTED WITH SODIUM CHLORIDE,
     Route: 041
  6. SODIUM CHLORIDE [Suspect]
     Active Substance: SODIUM CHLORIDE
     Dosage: 250 ML, QD, 4TH CHEMOTHERAPY, DOCETAXEL DILUTED WITH SODIUM CHLORIDE
     Route: 041
     Dates: start: 20220519, end: 20220519
  7. TAXOTERE [Suspect]
     Active Substance: DOCETAXEL
     Indication: Breast cancer female
     Dosage: UNK, QD, 1ST TO 3RD CHEMOTHERAPY, DOCETAXEL DILUTED WITH SODIUM CHLORIDE
     Route: 041
  8. TAXOTERE [Suspect]
     Active Substance: DOCETAXEL
     Dosage: 130.000000 MG ONCE DAILY, 4TH CHEMOTHERAPY, DOCETAXEL DILUTED WITH SODIUM CHLORIDE
     Route: 041
     Dates: start: 20220519, end: 20220519

REACTIONS (2)
  - White blood cell count decreased [Recovered/Resolved]
  - Agranulocytosis [Recovered/Resolved]

NARRATIVE: CASE EVENT DATE: 20220526
